FAERS Safety Report 16483760 (Version 1)
Quarter: 2019Q2

REPORT INFORMATION
  Report Type: Spontaneous
  Country: JP (occurrence: JP)
  Receive Date: 20190627
  Receipt Date: 20190627
  Transmission Date: 20190711
  Serious: Yes (Other)
  Sender: FDA-Public Use
  Company Number: JP-TEVA-2019-JP-003683J

PATIENT
  Sex: Female

DRUGS (3)
  1. TENELIA [Suspect]
     Active Substance: TENELIGLIPTIN
     Route: 048
  2. VOGLIBOSE [Suspect]
     Active Substance: VOGLIBOSE
     Indication: PRODUCT USED FOR UNKNOWN INDICATION
     Route: 048
  3. ACTOS [Suspect]
     Active Substance: PIOGLITAZONE HYDROCHLORIDE
     Indication: PRODUCT USED FOR UNKNOWN INDICATION
     Route: 048
     Dates: start: 2015, end: 2019

REACTIONS (3)
  - Pulmonary oedema [Unknown]
  - Pain [Unknown]
  - Oedema [Recovered/Resolved]
